FAERS Safety Report 6343049-4 (Version None)
Quarter: 2009Q3

REPORT INFORMATION
  Report Type: 
  Country: None (occurrence: None)
  Receive Date: 20090908
  Receipt Date: 20090828
  Transmission Date: 20100115
  Serious: Yes (Death)
  Sender: FDA-Public Use
  Company Number: US-ROCHE-653450

PATIENT
  Sex: Female
  Weight: 56.2 kg

DRUGS (1)
  1. CAPECITABINE [Suspect]
     Indication: COLORECTAL CANCER
     Dosage: DOSE: 1000 MG AM AND 1000 MG PM.
     Route: 048
     Dates: start: 20090630, end: 20090824

REACTIONS (1)
  - DEATH [None]
